FAERS Safety Report 7954905-5 (Version None)
Quarter: 2011Q4

REPORT INFORMATION
  Report Type: 
  Country: None (occurrence: None)
  Receive Date: 20111202
  Receipt Date: 20111125
  Transmission Date: 20120403
  Serious: Yes (Other)
  Sender: FDA-Public Use
  Company Number: US-B.I. PHARMACEUTICALS,INC./RIDGEFIELD-2011-EU-00772GD

PATIENT
  Age: 42 Year
  Sex: Male

DRUGS (4)
  1. NEVIRAPINE [Suspect]
     Indication: HIV INFECTION
  2. ATAZANAVIR SULFATE AND RITONAVIR [Suspect]
     Indication: HIV INFECTION
  3. ZIDOVUDINE [Suspect]
     Indication: HIV INFECTION
  4. LAMIVUDINE(PEPFAR) [Suspect]
     Indication: HIV INFECTION

REACTIONS (2)
  - CHRONIC HEPATITIS [None]
  - HEPATIC ENZYME INCREASED [None]
